FAERS Safety Report 25210435 (Version 2)
Quarter: 2025Q2

REPORT INFORMATION
  Report Type: Spontaneous
  Country: US (occurrence: US)
  Receive Date: 20250417
  Receipt Date: 20250514
  Transmission Date: 20250717
  Serious: No
  Sender: PFIZER
  Company Number: US-PFIZER INC-PV202500042855

PATIENT
  Age: 7 Year
  Sex: Male

DRUGS (1)
  1. GENOTROPIN [Suspect]
     Active Substance: SOMATROPIN
     Indication: Small for dates baby
     Dosage: 1.6 MG, DAILY
     Route: 058
     Dates: start: 201909

REACTIONS (9)
  - Thyroxine free increased [Unknown]
  - Serum ferritin decreased [Recovering/Resolving]
  - Condition aggravated [Recovering/Resolving]
  - Haemoglobin decreased [Unknown]
  - Eosinophil percentage increased [Unknown]
  - Blood creatinine decreased [Not Recovered/Not Resolved]
  - Blood iron increased [Not Recovered/Not Resolved]
  - Glycosylated haemoglobin increased [Not Recovered/Not Resolved]
  - Insulin-like growth factor increased [Unknown]

NARRATIVE: CASE EVENT DATE: 20200702
